FAERS Safety Report 18484755 (Version 1)
Quarter: 2020Q4

REPORT INFORMATION
  Report Type: Report from Study
  Country: MX (occurrence: MX)
  Receive Date: 20201110
  Receipt Date: 20201110
  Transmission Date: 20210114
  Serious: Yes (Death)
  Sender: FDA-Public Use
  Company Number: NVSC2020MX300752

PATIENT
  Age: 83 Year
  Sex: Female
  Weight: 37 kg

DRUGS (1)
  1. ENTRESTO [Suspect]
     Active Substance: SACUBITRIL\VALSARTAN
     Indication: MITRAL VALVE DISEASE
     Dosage: 1 DF, BID
     Route: 048
     Dates: start: 201609

REACTIONS (2)
  - Renal failure [Fatal]
  - Product use in unapproved indication [Unknown]

NARRATIVE: CASE EVENT DATE: 201609
